FAERS Safety Report 11600669 (Version 1)
Quarter: 2015Q4

REPORT INFORMATION
  Report Type: Spontaneous
  Country: US (occurrence: US)
  Receive Date: 20151006
  Receipt Date: 20151006
  Transmission Date: 20160304
  Serious: No
  Sender: FDA-Public Use
  Company Number: US-AMGEN-USASP2014100087

PATIENT
  Age: 55 Year
  Sex: Female
  Weight: 52.15 kg

DRUGS (5)
  1. VITAMIN D                          /00107901/ [Concomitant]
     Active Substance: ERGOCALCIFEROL
     Dosage: 4000 IU, QD
  2. RELPAX [Concomitant]
     Active Substance: ELETRIPTAN HYDROBROMIDE
     Indication: MIGRAINE
  3. PROLIA [Suspect]
     Active Substance: DENOSUMAB
     Indication: OSTEOPOROSIS POSTMENOPAUSAL
     Dosage: 60 MG, Q6MO
     Route: 058
     Dates: start: 20131104
  4. CALCIUM [Concomitant]
     Active Substance: CALCIUM
     Dosage: 50000 IU, UNK
  5. MVI                                /01825701/ [Concomitant]
     Active Substance: VITAMINS

REACTIONS (4)
  - Pain [Unknown]
  - Gingival discolouration [Unknown]
  - Tooth loss [Unknown]
  - Bone pain [Unknown]
